FAERS Safety Report 21033182 (Version 1)
Quarter: 2022Q3

REPORT INFORMATION
  Report Type: Spontaneous
  Country: IT (occurrence: IT)
  Receive Date: 20220701
  Receipt Date: 20220701
  Transmission Date: 20221027
  Serious: Yes (Disabling)
  Sender: FDA-Public Use
  Company Number: IT-MINISAL02-872772

PATIENT
  Age: 32 Year
  Sex: Male
  Weight: 125 kg

DRUGS (2)
  1. PAROXETINE [Suspect]
     Active Substance: PAROXETINE
     Indication: Panic attack
     Dosage: 20 MILLIGRAM, DAILY
     Route: 048
     Dates: start: 20200501, end: 20220506
  2. TRILAFON [Suspect]
     Active Substance: PERPHENAZINE
     Indication: Panic attack
     Dosage: 4 MILLIGRAM, DAILY
     Route: 048
     Dates: start: 20200501

REACTIONS (4)
  - Libido decreased [Not Recovered/Not Resolved]
  - Erectile dysfunction [Not Recovered/Not Resolved]
  - Genital anaesthesia [Not Recovered/Not Resolved]
  - Loss of libido [Not Recovered/Not Resolved]

NARRATIVE: CASE EVENT DATE: 20200501
